FAERS Safety Report 15928501 (Version 2)
Quarter: 2020Q2

REPORT INFORMATION
  Report Type: Spontaneous
  Country: US (occurrence: US)
  Receive Date: 20190206
  Receipt Date: 20200506
  Transmission Date: 20200713
  Serious: Yes (Other)
  Sender: FDA-Public Use
  Company Number: US-BRISTOL-MYERS SQUIBB COMPANY-BMS-2019-010778

PATIENT
  Sex: Female

DRUGS (1)
  1. ELIQUIS [Suspect]
     Active Substance: APIXABAN
     Indication: PROTEIN DEFICIENCY
     Dosage: UNAVAILABLE
     Route: 065

REACTIONS (2)
  - Intentional product use issue [Unknown]
  - Irritable bowel syndrome [Unknown]
